FAERS Safety Report 7498507-6 (Version None)
Quarter: 2011Q2

REPORT INFORMATION
  Report Type: 
  Country: None (occurrence: None)
  Receive Date: 20110516
  Receipt Date: 20110504
  Transmission Date: 20111010
  Serious: Yes (Hospitalization)
  Sender: FDA-Public Use
  Company Number: GER/UKI/11/0018185

PATIENT
  Sex: Male

DRUGS (1)
  1. FLUOXETINE [Suspect]
     Indication: PRODUCT USED FOR UNKNOWN INDICATION
     Dosage: 20 MG, INCREASED TO 40 MG, TRANSPLACENTAL; 40 MG, TRANSPLACENTAL
     Route: 064

REACTIONS (14)
  - CEREBRAL DISORDER [None]
  - CONVULSION NEONATAL [None]
  - MATERNAL DRUGS AFFECTING FOETUS [None]
  - OXYGEN SATURATION DECREASED [None]
  - IRRITABILITY [None]
  - DYSKINESIA [None]
  - MECONIUM STAIN [None]
  - AGITATION NEONATAL [None]
  - HYPERTONIA NEONATAL [None]
  - RESPIRATORY DISORDER NEONATAL [None]
  - POSTURE ABNORMAL [None]
  - MUSCLE SPASTICITY [None]
  - NEUROLOGICAL SYMPTOM [None]
  - OPISTHOTONUS [None]
